FAERS Safety Report 7742578-6 (Version None)
Quarter: 2011Q3

REPORT INFORMATION
  Report Type: 
  Country: None (occurrence: None)
  Receive Date: 20110912
  Receipt Date: 20110906
  Transmission Date: 20111222
  Serious: Yes (Death, Hospitalization)
  Sender: FDA-Public Use
  Company Number: GB-CELGENEUS-167-CCAZA-11063177

PATIENT
  Sex: Male
  Weight: 88.5 kg

DRUGS (7)
  1. ACYCLOVIR [Concomitant]
     Indication: ANTIVIRAL PROPHYLAXIS
     Dosage: 800 MILLIGRAM
     Route: 048
     Dates: start: 20110124
  2. AZACITIDINE [Suspect]
     Dosage: 170MG
     Route: 058
     Dates: start: 20110125, end: 20110424
  3. AZACITIDINE [Suspect]
     Dosage: 150MG
     Route: 058
     Dates: start: 20110613, end: 20110619
  4. CIPROFLOXACIN [Concomitant]
     Dosage: 1500 MILLIGRAM
     Route: 048
     Dates: start: 20110124
  5. METOCLOPRAMIDE [Concomitant]
     Indication: ANTIEMETIC SUPPORTIVE CARE
     Route: 048
     Dates: start: 20110124
  6. ADCAL D3 [Concomitant]
     Route: 048
     Dates: start: 20110124
  7. ADCAL D3 [Concomitant]
     Indication: VITAMIN SUPPLEMENTATION

REACTIONS (4)
  - SEPSIS [None]
  - FEBRILE NEUTROPENIA [None]
  - ACUTE MYELOID LEUKAEMIA [None]
  - ABDOMINAL PAIN [None]
